FAERS Safety Report 21106494 (Version 2)
Quarter: 2022Q3

REPORT INFORMATION
  Report Type: Spontaneous
  Country: US (occurrence: US)
  Receive Date: 20220720
  Receipt Date: 20220816
  Transmission Date: 20221027
  Serious: No
  Sender: FDA-Public Use
  Company Number: US-PFIZER INC-202200974967

PATIENT
  Sex: Female

DRUGS (1)
  1. DEPO-PROVERA [Suspect]
     Active Substance: MEDROXYPROGESTERONE ACETATE
     Dosage: UNK
     Dates: end: 2021

REACTIONS (18)
  - Withdrawal syndrome [Unknown]
  - Feeding disorder [Unknown]
  - Feeling abnormal [Unknown]
  - Nausea [Unknown]
  - Pain [Unknown]
  - Acne [Unknown]
  - Malaise [Unknown]
  - Amenorrhoea [Unknown]
  - Histamine level increased [Unknown]
  - General physical health deterioration [Unknown]
  - Anxiety [Unknown]
  - Dizziness [Unknown]
  - Weight decreased [Unknown]
  - Urticaria [Unknown]
  - Pruritus [Unknown]
  - Headache [Unknown]
  - Facial pain [Unknown]
  - White blood cell count decreased [Unknown]
